FAERS Safety Report 10933707 (Version 4)
Quarter: 2017Q1

REPORT INFORMATION
  Report Type: Spontaneous
  Country: US (occurrence: US)
  Receive Date: 20150320
  Receipt Date: 20170116
  Transmission Date: 20170428
  Serious: No
  Sender: FDA-Public Use
  Company Number: US-JNJFOC-20141202803

PATIENT
  Sex: Male

DRUGS (3)
  1. RISPERDAL [Suspect]
     Active Substance: RISPERIDONE
     Indication: DEPRESSION
     Route: 048
     Dates: end: 2002
  2. INVEGA [Suspect]
     Active Substance: PALIPERIDONE
     Indication: PRODUCT USED FOR UNKNOWN INDICATION
     Route: 048
  3. RISPERDAL [Suspect]
     Active Substance: RISPERIDONE
     Indication: DEPRESSION
     Dosage: 2 MG, 4 MG
     Route: 048
     Dates: start: 2000, end: 20010824

REACTIONS (5)
  - Off label use [Unknown]
  - Gynaecomastia [Unknown]
  - Product use issue [Unknown]
  - Abnormal weight gain [Unknown]
  - Emotional disorder [Unknown]

NARRATIVE: CASE EVENT DATE: 2000
